FAERS Safety Report 5321707-8 (Version None)
Quarter: 2007Q2

REPORT INFORMATION
  Report Type: 
  Country: None (occurrence: None)
  Receive Date: 20070510
  Receipt Date: 20070502
  Transmission Date: 20071010
  Serious: Yes (Other)
  Sender: FDA-Public Use
  Company Number: US-SANOFI-SYNTHELABO-A03200702112

PATIENT
  Sex: Female
  Weight: 68 kg

DRUGS (6)
  1. OXYCODONE HCL [Concomitant]
     Route: 048
  2. LIPITOR [Concomitant]
     Dosage: UNK
     Route: 048
     Dates: start: 19970101
  3. CARISOPRODOL [Concomitant]
     Dosage: UNK
     Route: 065
  4. HYDROCODONE [Concomitant]
     Dosage: UNK
  5. AMBIEN [Suspect]
     Indication: SLEEP DISORDER
     Route: 048
     Dates: start: 19990101, end: 20050219
  6. ALCOHOL [Concomitant]
     Dosage: UNK
     Route: 065

REACTIONS (9)
  - AMNESIA [None]
  - DRUG INEFFECTIVE [None]
  - EATING DISORDER [None]
  - EXCORIATION [None]
  - IMPAIRED DRIVING ABILITY [None]
  - ROAD TRAFFIC ACCIDENT [None]
  - SKIN LACERATION [None]
  - SLEEP WALKING [None]
  - THERAPEUTIC RESPONSE DELAYED [None]
